FAERS Safety Report 20920979 (Version 4)
Quarter: 2022Q4

REPORT INFORMATION
  Report Type: Report from Study
  Country: JP (occurrence: JP)
  Receive Date: 20220606
  Receipt Date: 20221107
  Transmission Date: 20230113
  Serious: Yes (Hospitalization)
  Sender: FDA-Public Use
  Company Number: JP-Eisai-202202207_PENT_C_1

PATIENT
  Age: 66 Year
  Sex: Male
  Weight: 61 kg

DRUGS (23)
  1. E-7386 [Suspect]
     Active Substance: E-7386
     Indication: Hepatocellular carcinoma
     Route: 048
     Dates: start: 20211111, end: 20220104
  2. E-7386 [Suspect]
     Active Substance: E-7386
     Route: 048
     Dates: start: 20220105, end: 20220105
  3. E-7386 [Suspect]
     Active Substance: E-7386
     Route: 048
     Dates: start: 20220106, end: 20220110
  4. E-7386 [Suspect]
     Active Substance: E-7386
     Route: 048
     Dates: start: 20220111, end: 20220111
  5. E-7386 [Suspect]
     Active Substance: E-7386
     Route: 048
     Dates: start: 20220127, end: 20220309
  6. E-7386 [Suspect]
     Active Substance: E-7386
     Route: 048
     Dates: start: 20220310, end: 20220310
  7. E-7386 [Suspect]
     Active Substance: E-7386
     Route: 048
     Dates: start: 20220311, end: 20220406
  8. E-7386 [Suspect]
     Active Substance: E-7386
     Route: 048
     Dates: start: 20220407, end: 20220407
  9. E-7386 [Suspect]
     Active Substance: E-7386
     Route: 048
     Dates: start: 20220408, end: 20220503
  10. E-7386 [Suspect]
     Active Substance: E-7386
     Dosage: SUBJECT MISSED ONE DOSE
     Route: 048
     Dates: start: 20220504, end: 20220504
  11. E-7386 [Suspect]
     Active Substance: E-7386
     Route: 048
     Dates: start: 20220505, end: 20220518
  12. LENVATINIB [Suspect]
     Active Substance: LENVATINIB
     Indication: Hepatocellular carcinoma
     Route: 048
     Dates: start: 20211117, end: 20220111
  13. LENVATINIB [Suspect]
     Active Substance: LENVATINIB
     Route: 048
     Dates: start: 20220120, end: 20220518
  14. AMLODIPINE BESYLATE [Concomitant]
     Active Substance: AMLODIPINE BESYLATE
     Indication: Hypertension
     Route: 048
     Dates: start: 20211121
  15. CANDESARTAN [Concomitant]
     Active Substance: CANDESARTAN
     Indication: Hypertension
     Route: 048
     Dates: start: 20211121
  16. RABEPRAZOLE SODIUM [Concomitant]
     Active Substance: RABEPRAZOLE SODIUM
     Indication: Prophylaxis
     Route: 048
     Dates: start: 20210810
  17. TRICHLORMETHIAZIDE [Concomitant]
     Active Substance: TRICHLORMETHIAZIDE
     Indication: Hypertension
     Route: 048
     Dates: start: 20211209
  18. SYMPROIC [Concomitant]
     Active Substance: NALDEMEDINE
     Indication: Constipation
     Route: 048
     Dates: start: 20220224
  19. SENNOSIDES [Concomitant]
     Active Substance: SENNOSIDES
     Indication: Constipation
     Route: 048
     Dates: start: 20220224
  20. LOXOPROFEN SODIUM [Concomitant]
     Active Substance: LOXOPROFEN SODIUM
     Indication: Pain
     Route: 048
     Dates: start: 20210810
  21. LEVOTHYROXINE [Concomitant]
     Active Substance: LEVOTHYROXINE
     Indication: Hypothyroidism
     Route: 048
     Dates: start: 20220421
  22. MAGNESIUM OXIDE [Concomitant]
     Active Substance: MAGNESIUM OXIDE
     Indication: Constipation
     Route: 048
     Dates: start: 20220506
  23. SODIUM GUALENATE MONOHYDRATE [Concomitant]
     Active Substance: SODIUM GUALENATE MONOHYDRATE
     Indication: Stomatitis
     Dates: start: 20210819

REACTIONS (1)
  - Peritonitis [Recovering/Resolving]

NARRATIVE: CASE EVENT DATE: 20220519
